FAERS Safety Report 9277202 (Version 2)
Quarter: 2013Q2

REPORT INFORMATION
  Report Type: Report from Study
  Country: CA (occurrence: CA)
  Receive Date: 20130508
  Receipt Date: 20130510
  Transmission Date: 20140414
  Serious: Yes (Death)
  Sender: FDA-Public Use
  Company Number: CA-ROCHE-1222163

PATIENT
  Sex: Male
  Weight: 79.8 kg

DRUGS (6)
  1. XELODA [Suspect]
     Indication: ADENOCARCINOMA
     Route: 048
     Dates: start: 201302, end: 2013
  2. GABAPENTIN [Concomitant]
  3. MORPHINE [Concomitant]
  4. APO-NAPROXEN [Concomitant]
  5. PANTOPRAZOLE [Concomitant]
  6. DEXAMETHASONE [Concomitant]

REACTIONS (1)
  - Malignant neoplasm progression [Fatal]
